FAERS Safety Report 7053569-5 (Version None)
Quarter: 2010Q4

REPORT INFORMATION
  Report Type: 
  Country: None (occurrence: None)
  Receive Date: 20101020
  Receipt Date: 20101007
  Transmission Date: 20110411
  Serious: Yes (Other)
  Sender: FDA-Public Use
  Company Number: US-SANOFI-AVENTIS-2010SA061726

PATIENT
  Age: 69 Year
  Sex: Female

DRUGS (7)
  1. PLAVIX [Suspect]
     Indication: STENT PLACEMENT
     Route: 048
     Dates: start: 20091001
  2. ASPIRIN [Suspect]
     Indication: STENT PLACEMENT
     Dosage: 325 MG RANDOMLY ALTERNATING WITH 81 MG DAILY
     Route: 065
     Dates: start: 20091001
  3. ASPIRIN [Suspect]
     Route: 065
     Dates: start: 20091001
  4. SIMVASTATIN [Concomitant]
  5. MORPHINE [Concomitant]
  6. ANALGESICS [Concomitant]
  7. LORTAB [Concomitant]
     Indication: PAIN
     Route: 048

REACTIONS (1)
  - DEVICE OCCLUSION [None]
